FAERS Safety Report 9399996 (Version 1)
Quarter: 2013Q3

REPORT INFORMATION
  Report Type: Spontaneous
  Country: BR (occurrence: BR)
  Receive Date: 20130715
  Receipt Date: 20130715
  Transmission Date: 20140515
  Serious: Yes (Hospitalization)
  Sender: FDA-Public Use
  Company Number: BR-SANOFI-AVENTIS-2013SA069203

PATIENT
  Age: 83 Year
  Sex: Female
  Weight: 55 kg

DRUGS (11)
  1. LANTUS SOLOSTAR [Suspect]
     Indication: TYPE 2 DIABETES MELLITUS
     Dosage: DOSE: 12 UNOTS DAILY BETWEEN 11:00 AM AND NOON DOSE:12 UNIT(S)
     Route: 058
     Dates: start: 201212
  2. SOLOSTAR [Suspect]
     Indication: DEVICE THERAPY
     Dates: start: 201212
  3. CILOSTAZOL [Concomitant]
     Dosage: STRENGTH: 50 MG
     Route: 048
  4. COUMADIN [Concomitant]
     Dosage: STRENGTH: 5MG
     Route: 048
  5. CRESTOR [Concomitant]
     Dosage: STRENGTH: 10 MG
     Route: 048
  6. ALDACTONE [Concomitant]
     Dosage: STRENGTH: 25 MG
     Route: 048
  7. ACETYLSALICYLIC ACID [Concomitant]
     Dosage: STRENGTH: 81 MG
     Route: 048
  8. CARVEDILOL [Concomitant]
     Dosage: STRENGTH: 3.125 MG
     Route: 048
  9. OMEPRAZOLE [Concomitant]
     Indication: PROPHYLAXIS
     Dosage: STRENGTH: 20 MG
     Route: 048
  10. LASIX [Concomitant]
     Dosage: STRENGTH: 40 MG
     Route: 048
  11. HUMALOG [Concomitant]
     Indication: TYPE 2 DIABETES MELLITUS
     Route: 058
     Dates: start: 201212

REACTIONS (11)
  - Ischaemia [Recovered/Resolved with Sequelae]
  - Speech disorder [Unknown]
  - Facial asymmetry [Unknown]
  - Dysphagia [Recovered/Resolved]
  - Infection [Recovered/Resolved]
  - Swelling [Not Recovered/Not Resolved]
  - Hypotension [Recovered/Resolved]
  - Hyperglycaemia [Unknown]
  - Hypoglycaemia [Recovered/Resolved]
  - Feeling abnormal [Recovered/Resolved]
  - Hyperhidrosis [Recovered/Resolved]
